FAERS Safety Report 24876928 (Version 1)
Quarter: 2025Q1

REPORT INFORMATION
  Report Type: Report from Study
  Country: BR (occurrence: BR)
  Receive Date: 20250123
  Receipt Date: 20250123
  Transmission Date: 20250409
  Serious: Yes (Other)
  Sender: CELLTRION
  Company Number: BR-CELLTRION INC.-2024BR025836

PATIENT

DRUGS (5)
  1. RITUXIMAB-ABBS [Suspect]
     Active Substance: RITUXIMAB-ABBS
     Indication: Nephrotic syndrome
     Route: 042
     Dates: start: 2020
  2. RITUXIMAB-ABBS [Suspect]
     Active Substance: RITUXIMAB-ABBS
     Route: 042
     Dates: start: 202202
  3. ENDAZOLE [Concomitant]
     Indication: Premedication
     Dates: start: 20241011
  4. ENDAZOLE [Concomitant]
     Dates: start: 20241012
  5. ENDAZOLE [Concomitant]
     Dates: start: 20241013

REACTIONS (5)
  - Tracheal stenosis [Unknown]
  - Infusion related hypersensitivity reaction [Unknown]
  - Throat irritation [Unknown]
  - Intentional product use issue [Unknown]
  - Therapeutic product effect decreased [Unknown]
